FAERS Safety Report 9890588 (Version 1)
Quarter: 2014Q1

REPORT INFORMATION
  Report Type: Spontaneous
  Country: US (occurrence: US)
  Receive Date: 20140212
  Receipt Date: 20140212
  Transmission Date: 20141002
  Serious: Yes (Other)
  Sender: FDA-Public Use
  Company Number: US-SA-2014SA016886

PATIENT
  Sex: Male

DRUGS (3)
  1. AMARYL [Suspect]
     Route: 065
  2. METFORMIN [Concomitant]
     Route: 065
  3. ACTOS [Concomitant]
     Route: 065

REACTIONS (1)
  - Renal mass [Unknown]
